FAERS Safety Report 9261639 (Version 1)
Quarter: 2013Q2

REPORT INFORMATION
  Report Type: Report from Study
  Country: FR (occurrence: FR)
  Receive Date: 20130429
  Receipt Date: 20130429
  Transmission Date: 20140414
  Serious: Yes (Death, Hospitalization, Other)
  Sender: FDA-Public Use
  Company Number: FR-ACTELION-A-CH2013-82227

PATIENT
  Age: 57 Year
  Sex: Female
  Weight: 65 kg

DRUGS (5)
  1. TRACLEER [Suspect]
     Indication: SKIN ULCER
     Dosage: 125 MG, BID
     Route: 048
     Dates: end: 20090622
  2. TRACLEER [Suspect]
     Dosage: 62.5 MG, BID
     Route: 048
     Dates: start: 20080610
  3. OGAST [Concomitant]
  4. TRIMEBUTINE [Concomitant]
  5. NIFEDIPINE [Concomitant]

REACTIONS (22)
  - Intestinal ischaemia [Fatal]
  - Septic shock [Fatal]
  - Multi-organ failure [Fatal]
  - Abdominal pain [Fatal]
  - Hypotension [Fatal]
  - Volvulus [Fatal]
  - Gastrointestinal necrosis [Fatal]
  - Colectomy [Recovered/Resolved]
  - Small intestinal resection [Recovered/Resolved]
  - Hepatic failure [Fatal]
  - Transaminases increased [Fatal]
  - Hepatocellular injury [Fatal]
  - Coagulopathy [Fatal]
  - Cholecystectomy [Recovered/Resolved]
  - Hepatic necrosis [Fatal]
  - Extremity necrosis [Fatal]
  - Renal failure [Fatal]
  - Cardiovascular insufficiency [Fatal]
  - Respiratory failure [Fatal]
  - Thrombocytopenia [Fatal]
  - Gastrointestinal surgery [Recovered/Resolved]
  - Platelet transfusion [Recovered/Resolved]
